FAERS Safety Report 4355284-5 (Version None)
Quarter: 2004Q2

REPORT INFORMATION
  Report Type: 
  Country: None (occurrence: None)
  Receive Date: 20040504
  Receipt Date: 20030724
  Transmission Date: 20050107
  Serious: Yes (Other)
  Sender: FDA-Public Use
  Company Number: 200302374

PATIENT
  Sex: Male

DRUGS (1)
  1. TYLENOL 8 HOUR EXTENDED RELEASE [Suspect]
     Indication: JAW OPERATION
     Dosage: 650 MG QD PO
     Route: 048
     Dates: start: 20030708, end: 20030710

REACTIONS (2)
  - APNOEA [None]
  - CONVULSION [None]
